FAERS Safety Report 5130027-6 (Version None)
Quarter: 2006Q4

REPORT INFORMATION
  Report Type: 
  Country: None (occurrence: None)
  Receive Date: 20061013
  Receipt Date: 20061002
  Transmission Date: 20070319
  Serious: Yes (Hospitalization)
  Sender: FDA-Public Use
  Company Number: 2006121237

PATIENT
  Age: 85 Year
  Sex: Male
  Weight: 60 kg

DRUGS (9)
  1. AMLODIPINE [Suspect]
     Dosage: 5 MG (EVERY DAY), ORAL
     Route: 048
  2. CELIPROLOL HYDROCHLORIDE (CELIPROLOL HYDROCHLORIDE) [Suspect]
     Dosage: 200 MG (EVERY DAY), ORAL
     Route: 048
  3. NITROGLYCERIN [Suspect]
     Dosage: 10 MG (EVERY DAY), TRANSDERMAL
     Route: 062
     Dates: end: 20060712
  4. IKOREL (NICORANDIL) [Suspect]
     Dosage: 10 MG (EVERY DAY), ORAL
     Route: 048
  5. CLONIDINE [Suspect]
     Dosage: 0.07 MG (EVERY DAY), ORAL
     Route: 048
  6. LASIX [Suspect]
     Dosage: 20 MG (EVERY DAY), ORAL
     Route: 048
  7. SINTROM [Concomitant]
  8. LANSOPRAZOLE [Concomitant]
  9. FORADIL (FORMETOROL FUMARATE) [Concomitant]

REACTIONS (11)
  - ACTIVITIES OF DAILY LIVING IMPAIRED [None]
  - ANAEMIA [None]
  - ATRIOVENTRICULAR BLOCK FIRST DEGREE [None]
  - CONDITION AGGRAVATED [None]
  - DRUG INTERACTION [None]
  - FALL [None]
  - INTERNATIONAL NORMALISED RATIO INCREASED [None]
  - MUSCLE HAEMORRHAGE [None]
  - RENAL FAILURE [None]
  - RHABDOMYOLYSIS [None]
  - SUPRAVENTRICULAR EXTRASYSTOLES [None]
